FAERS Safety Report 6912603-0 (Version None)
Quarter: 2010Q3

REPORT INFORMATION
  Report Type: 
  Country: None (occurrence: None)
  Receive Date: 20100806
  Receipt Date: 20080923
  Transmission Date: 20110219
  Serious: No
  Sender: FDA-Public Use
  Company Number: US-PFIZER INC-2008068554

PATIENT
  Sex: Female
  Weight: 61.4 kg

DRUGS (6)
  1. DETROL LA [Suspect]
     Indication: MICTURITION URGENCY
  2. DETROL LA [Suspect]
     Indication: URINARY INCONTINENCE
  3. LOPRESSOR [Concomitant]
  4. PROCARDIA XL [Concomitant]
  5. LANOXIN [Concomitant]
  6. WARFARIN SODIUM [Concomitant]

REACTIONS (3)
  - DRUG INEFFECTIVE [None]
  - DRY MOUTH [None]
  - INCORRECT DOSE ADMINISTERED [None]
